FAERS Safety Report 23158890 (Version 1)
Quarter: 2023Q4

REPORT INFORMATION
  Report Type: Report from Study
  Country: US (occurrence: US)
  Receive Date: 20231108
  Receipt Date: 20231108
  Transmission Date: 20240110
  Serious: No
  Sender: FDA-Public Use
  Company Number: US-002147023-NVSC2023US237432

PATIENT
  Sex: Female

DRUGS (1)
  1. KESIMPTA [Suspect]
     Active Substance: OFATUMUMAB
     Indication: Relapsing multiple sclerosis
     Dosage: 20 MG, QW
     Route: 058
     Dates: start: 20231028

REACTIONS (7)
  - Influenza like illness [Unknown]
  - Feeling of body temperature change [Unknown]
  - Fatigue [Unknown]
  - Dyspnoea [Unknown]
  - Pain in extremity [Unknown]
  - Dysstasia [Unknown]
  - Fear [Unknown]
